FAERS Safety Report 9399169 (Version 1)
Quarter: 2013Q3

REPORT INFORMATION
  Report Type: Spontaneous
  Country: DE (occurrence: None)
  Receive Date: 20130709
  Receipt Date: 20130709
  Transmission Date: 20140515
  Serious: Yes (Other)
  Sender: FDA-Public Use
  Company Number: NGX_01884_2013

PATIENT
  Age: 48 Year
  Sex: Female
  Weight: 70 kg

DRUGS (8)
  1. QUTENZA [Suspect]
     Indication: ALLODYNIA
     Dosage: 1 DF 1X, PATCH , TOPICAL
     Dates: start: 20130621, end: 20130621
  2. BISOPROLOL [Concomitant]
  3. L-THYROXIN [Concomitant]
  4. PREDNISONE [Concomitant]
  5. OMEP/ 00661201 [Concomitant]
  6. CELEBREX [Concomitant]
  7. CALCIMAGON D3 [Concomitant]
  8. FEM7 CONTI [Concomitant]

REACTIONS (2)
  - Drug eruption [None]
  - Hypersensitivity [None]
